FAERS Safety Report 22285186 (Version 1)
Quarter: 2023Q2

REPORT INFORMATION
  Report Type: Report from Study
  Country: US (occurrence: US)
  Receive Date: 20230504
  Receipt Date: 20230504
  Transmission Date: 20230721
  Serious: Yes (Other)
  Sender: FDA-Public Use
  Company Number: US-002147023-NVSC2023US098607

PATIENT
  Sex: Male

DRUGS (28)
  1. ATORVASTATIN [Suspect]
     Active Substance: ATORVASTATIN
     Indication: Psoriasis
     Dosage: 20 MG
     Route: 048
  2. ATORVASTATIN [Suspect]
     Active Substance: ATORVASTATIN
     Indication: Psoriatic arthropathy
  3. CLOBETASOL [Suspect]
     Active Substance: CLOBETASOL
     Indication: Psoriasis
     Dosage: 0.05 %
     Route: 061
  4. CLOBETASOL [Suspect]
     Active Substance: CLOBETASOL
     Indication: Psoriatic arthropathy
  5. CLOBETASOL [Suspect]
     Active Substance: CLOBETASOL
     Indication: Psoriasis
     Dosage: 0.05 %
     Route: 061
  6. CLOBETASOL [Suspect]
     Active Substance: CLOBETASOL
     Indication: Psoriatic arthropathy
  7. CARVEDILOL [Suspect]
     Active Substance: CARVEDILOL
     Indication: Psoriasis
     Dosage: 25 MG
     Route: 048
  8. CARVEDILOL [Suspect]
     Active Substance: CARVEDILOL
     Indication: Psoriatic arthropathy
  9. ENALAPRIL [Suspect]
     Active Substance: ENALAPRIL
     Indication: Psoriasis
     Dosage: 20 MG
     Route: 048
  10. ENALAPRIL [Suspect]
     Active Substance: ENALAPRIL
     Indication: Psoriatic arthropathy
  11. LORAZEPAM [Suspect]
     Active Substance: LORAZEPAM
     Indication: Psoriasis
     Dosage: 1 MG
     Route: 048
  12. LORAZEPAM [Suspect]
     Active Substance: LORAZEPAM
     Indication: Psoriatic arthropathy
  13. LIDOCAINE [Suspect]
     Active Substance: LIDOCAINE
     Indication: Psoriasis
     Dosage: 1 %
     Route: 065
  14. LIDOCAINE [Suspect]
     Active Substance: LIDOCAINE
     Indication: Psoriatic arthropathy
  15. PANTOPRAZOLE [Suspect]
     Active Substance: PANTOPRAZOLE
     Indication: Psoriasis
     Dosage: 40 MG (DELAYED RELEASE (DR/EC)
     Route: 048
  16. PANTOPRAZOLE [Suspect]
     Active Substance: PANTOPRAZOLE
     Indication: Psoriatic arthropathy
  17. FLUTICASONE [Suspect]
     Active Substance: FLUTICASONE
     Indication: Psoriasis
     Dosage: 50 UG
     Route: 045
  18. FLUTICASONE [Suspect]
     Active Substance: FLUTICASONE
     Indication: Psoriatic arthropathy
  19. CLONIDINE [Suspect]
     Active Substance: CLONIDINE
     Indication: Psoriasis
     Dosage: 0.2 MG
     Route: 048
  20. CLONIDINE [Suspect]
     Active Substance: CLONIDINE
     Indication: Psoriatic arthropathy
  21. FUROSEMIDE [Suspect]
     Active Substance: FUROSEMIDE
     Indication: Psoriasis
     Dosage: 40 MG
     Route: 048
  22. FUROSEMIDE [Suspect]
     Active Substance: FUROSEMIDE
     Indication: Psoriatic arthropathy
  23. CALCIPOTRIENE [Suspect]
     Active Substance: CALCIPOTRIENE
     Indication: Psoriasis
     Dosage: 0.005 %
     Route: 061
  24. CALCIPOTRIENE [Suspect]
     Active Substance: CALCIPOTRIENE
     Indication: Psoriatic arthropathy
  25. HYDRALAZINE [Suspect]
     Active Substance: HYDRALAZINE HYDROCHLORIDE
     Indication: Psoriasis
     Dosage: 50 MG
     Route: 048
  26. HYDRALAZINE [Suspect]
     Active Substance: HYDRALAZINE HYDROCHLORIDE
     Indication: Psoriatic arthropathy
  27. EPINEPHRINE [Concomitant]
     Active Substance: EPINEPHRINE
     Indication: Product used for unknown indication
     Dosage: UNK
     Route: 065
  28. ENBREL [Concomitant]
     Active Substance: ETANERCEPT
     Indication: Product used for unknown indication
     Route: 065

REACTIONS (6)
  - Basal cell carcinoma [Unknown]
  - Skin plaque [Unknown]
  - Skin lesion [Unknown]
  - Psoriasis [Unknown]
  - Product use in unapproved indication [Unknown]
  - Drug ineffective [Unknown]
